FAERS Safety Report 16509522 (Version 1)
Quarter: 2019Q3

REPORT INFORMATION
  Report Type: Spontaneous
  Country: US (occurrence: US)
  Receive Date: 20190701
  Receipt Date: 20190701
  Transmission Date: 20191004
  Serious: No
  Sender: FDA-Public Use
  Company Number: US-LEXICON PHARMACEUTICALS, INC-19-1606-00648

PATIENT
  Sex: Female

DRUGS (9)
  1. FLONASE [Concomitant]
     Active Substance: FLUTICASONE PROPIONATE
  2. ASPIRIN. [Concomitant]
     Active Substance: ASPIRIN
  3. PROLIA [Concomitant]
     Active Substance: DENOSUMAB
  4. NOVOLOG [Concomitant]
     Active Substance: INSULIN ASPART
  5. TELOTRISTAT ETHYL [Suspect]
     Active Substance: TELOTRISTAT ETHYL
     Indication: CARCINOID TUMOUR OF THE SMALL BOWEL
     Route: 048
     Dates: start: 20180816
  6. TELOTRISTAT ETHYL [Suspect]
     Active Substance: TELOTRISTAT ETHYL
     Route: 048
  7. OCTREOTIDE. [Concomitant]
     Active Substance: OCTREOTIDE
  8. ALTACE [Concomitant]
     Active Substance: RAMIPRIL
  9. LIPITOR [Concomitant]
     Active Substance: ATORVASTATIN CALCIUM

REACTIONS (1)
  - Constipation [Not Recovered/Not Resolved]
